FAERS Safety Report 6230994-3 (Version None)
Quarter: 2009Q2

REPORT INFORMATION
  Report Type: 
  Country: None (occurrence: None)
  Receive Date: 20090616
  Receipt Date: 20090610
  Transmission Date: 20091009
  Serious: Yes (Other)
  Sender: FDA-Public Use
  Company Number: US-BAYER-200923233NA

PATIENT
  Age: 24 Year
  Sex: Female

DRUGS (2)
  1. YASMIN [Suspect]
     Indication: CONTRACEPTION
     Dosage: CONTINUOUS
     Route: 015
     Dates: start: 20071118
  2. INHALER [Concomitant]

REACTIONS (3)
  - ATROPHIC VULVOVAGINITIS [None]
  - VAGINAL LACERATION [None]
  - VULVOVAGINAL PAIN [None]
